FAERS Safety Report 20125732 (Version 1)
Quarter: 2021Q4

REPORT INFORMATION
  Report Type: Spontaneous
  Country: GR (occurrence: GR)
  Receive Date: 20211129
  Receipt Date: 20211129
  Transmission Date: 20220303
  Serious: Yes (Other)
  Sender: FDA-Public Use
  Company Number: GR-TAKEDA-2021TEU009545

PATIENT
  Age: 75 Year
  Sex: Male

DRUGS (1)
  1. CONTROLOC [Suspect]
     Active Substance: PANTOPRAZOLE SODIUM
     Indication: Gastric disorder
     Dosage: UNK UNK, QD
     Route: 048

REACTIONS (2)
  - Testicular swelling [Unknown]
  - Blood glucose abnormal [Unknown]
